FAERS Safety Report 14418368 (Version 3)
Quarter: 2018Q2

REPORT INFORMATION
  Report Type: Spontaneous
  Country: US (occurrence: US)
  Receive Date: 20180122
  Receipt Date: 20180516
  Transmission Date: 20180711
  Serious: No
  Sender: FDA-Public Use
  Company Number: US-NEUROCRINE BIOSCIENCES INC.-2017NBI01859

PATIENT
  Sex: Male

DRUGS (9)
  1. INGREZZA [Suspect]
     Active Substance: VALBENAZINE
     Indication: TARDIVE DYSKINESIA
     Route: 048
     Dates: start: 2017, end: 2017
  2. KEPPRA [Concomitant]
     Active Substance: LEVETIRACETAM
  3. ATIVAN [Concomitant]
     Active Substance: LORAZEPAM
  4. VALIUM [Concomitant]
     Active Substance: DIAZEPAM
  5. INGREZZA [Suspect]
     Active Substance: VALBENAZINE
     Route: 048
     Dates: start: 2017, end: 2017
  6. INGREZZA [Suspect]
     Active Substance: VALBENAZINE
     Route: 048
     Dates: start: 2017, end: 2017
  7. VENLAFAXINE [Concomitant]
     Active Substance: VENLAFAXINE HYDROCHLORIDE
  8. CLOZARIL [Concomitant]
     Active Substance: CLOZAPINE
  9. RISPERDAL [Concomitant]
     Active Substance: RISPERIDONE

REACTIONS (5)
  - Confusional state [Recovered/Resolved]
  - Abnormal behaviour [Recovered/Resolved]
  - Incontinence [Recovered/Resolved]
  - Dysstasia [Recovered/Resolved]
  - Gait disturbance [Recovered/Resolved]

NARRATIVE: CASE EVENT DATE: 2017
